FAERS Safety Report 15712053 (Version 1)
Quarter: 2018Q4

REPORT INFORMATION
  Report Type: Spontaneous
  Country: US (occurrence: US)
  Receive Date: 20181212
  Receipt Date: 20181212
  Transmission Date: 20190205
  Serious: Yes (Other)
  Sender: FDA-Public Use
  Company Number: US-CIPLA (EU) LIMITED-2018US23399

PATIENT

DRUGS (3)
  1. ALBUTEROL                          /00139501/ [Concomitant]
     Active Substance: ALBUTEROL
     Indication: ASTHMA
     Dosage: 2.5 MG, TID (THREE TIMES A DAY ONLY FOR 3 DAYS)
     Route: 065
  2. BUDESONIDE. [Suspect]
     Active Substance: BUDESONIDE
     Indication: ASTHMA
     Dosage: 0.5MG/2ML, BID
     Dates: start: 201809, end: 20181125
  3. CETIRIZINE [Concomitant]
     Active Substance: CETIRIZINE HYDROCHLORIDE
     Indication: HYPERSENSITIVITY
     Dosage: 5 MG, QD
     Route: 065

REACTIONS (7)
  - Nasal congestion [Recovered/Resolved]
  - Malaise [Unknown]
  - Sinus congestion [Recovered/Resolved]
  - Rhinitis allergic [Recovered/Resolved]
  - Sinusitis [Unknown]
  - Nasopharyngitis [Unknown]
  - Manufacturing materials issue [Unknown]
